FAERS Safety Report 25524701 (Version 1)
Quarter: 2025Q3

REPORT INFORMATION
  Report Type: Spontaneous
  Country: US (occurrence: None)
  Receive Date: 20250705
  Receipt Date: 20250705
  Transmission Date: 20251020
  Serious: No
  Sender: FDA-CTU
  Company Number: None

PATIENT
  Age: 59 Year
  Sex: Female
  Weight: 103.05 kg

DRUGS (3)
  1. LEQVIO [Suspect]
     Active Substance: INCLISIRAN SODIUM
     Indication: Hypercholesterolaemia
     Route: 058
     Dates: start: 20250522
  2. REPATHA [Suspect]
     Active Substance: EVOLOCUMAB
  3. Tizanidine Synthroid [Concomitant]

REACTIONS (5)
  - Muscle spasms [None]
  - Muscle spasms [None]
  - Muscle spasms [None]
  - Myalgia [None]
  - Tendon pain [None]

NARRATIVE: CASE EVENT DATE: 20250525
